FAERS Safety Report 26142754 (Version 1)
Quarter: 2025Q4

REPORT INFORMATION
  Report Type: Spontaneous
  Country: US (occurrence: US)
  Receive Date: 20251211
  Receipt Date: 20251211
  Transmission Date: 20260117
  Serious: Yes (Other)
  Sender: AMGEN
  Company Number: US-AMGEN-USASP2025240514

PATIENT
  Age: 72 Year
  Sex: Male

DRUGS (11)
  1. INEBILIZUMAB [Suspect]
     Active Substance: INEBILIZUMAB
     Indication: Pemphigus
     Dosage: 300 MILLIGRAM (2 WEEKS APART)
     Route: 040
  2. INEBILIZUMAB [Suspect]
     Active Substance: INEBILIZUMAB
     Indication: Off label use
     Dosage: 300 MILLIGRAM (2 WEEKS APART)
     Route: 040
  3. INEBILIZUMAB [Suspect]
     Active Substance: INEBILIZUMAB
     Dosage: 300 MILLIGRAM (FINAL INFUSION)
     Route: 040
  4. RITUXIMAB [Suspect]
     Active Substance: RITUXIMAB
     Indication: Pemphigus
     Dosage: UNK (A 6-DOSE RITUXIMAB REGIMEN OVER 4 MONTHS)
     Route: 065
  5. RITUXIMAB [Suspect]
     Active Substance: RITUXIMAB
     Indication: Off label use
  6. PREDNISONE [Suspect]
     Active Substance: PREDNISONE
     Indication: Pemphigus
     Dosage: 70 MILLIGRAM, QD
     Route: 048
  7. PREDNISONE [Suspect]
     Active Substance: PREDNISONE
     Indication: Off label use
     Dosage: 60 MILLIGRAM, QD
     Route: 048
  8. PREDNISONE [Suspect]
     Active Substance: PREDNISONE
     Dosage: 30 MILLIGRAM, QD
     Route: 048
  9. PREDNISONE [Suspect]
     Active Substance: PREDNISONE
     Dosage: 5 MILLIGRAM, QD
     Route: 048
  10. TOFACITINIB [Concomitant]
     Active Substance: TOFACITINIB
     Indication: Pemphigus
     Dosage: UNK UNK, BID
     Route: 048
  11. MYCOPHENOLIC ACID [Concomitant]
     Active Substance: MYCOPHENOLIC ACID
     Indication: Pemphigus
     Dosage: UNK
     Route: 065

REACTIONS (7)
  - Mycobacterium chelonae infection [Unknown]
  - Pemphigus [Unknown]
  - Drug effective for unapproved indication [Unknown]
  - Drug resistance [Unknown]
  - Abscess [Unknown]
  - Post inflammatory pigmentation change [Unknown]
  - Off label use [Unknown]
